FAERS Safety Report 7281327-5 (Version None)
Quarter: 2011Q1

REPORT INFORMATION
  Report Type: 
  Country: None (occurrence: None)
  Receive Date: 20110208
  Receipt Date: 20110203
  Transmission Date: 20110831
  Serious: Yes (Death)
  Sender: FDA-Public Use
  Company Number: IT-PFIZER INC-2010149283

PATIENT
  Age: 75 Year
  Sex: Female

DRUGS (6)
  1. PERINDOPRIL [Concomitant]
  2. NEBIVOLOL [Concomitant]
  3. ACETYLSALICYLIC ACID [Concomitant]
  4. SOMAVERT [Suspect]
     Indication: ACROMEGALY
     Dosage: 10 MG, 1X/DAY
     Route: 058
     Dates: start: 20040501, end: 20090311
  5. HYDROCHLOROTHIAZIDE [Concomitant]
  6. ENALAPRIL MALEATE [Concomitant]

REACTIONS (4)
  - OESOPHAGEAL CARCINOMA [None]
  - ACUTE PULMONARY OEDEMA [None]
  - OESOPHAGEAL STENOSIS [None]
  - COLON ADENOMA [None]
